FAERS Safety Report 8211965-4 (Version None)
Quarter: 2012Q1

REPORT INFORMATION
  Report Type: 
  Country: None (occurrence: None)
  Receive Date: 20120315
  Receipt Date: 20120308
  Transmission Date: 20120608
  Serious: Yes (Death)
  Sender: FDA-Public Use
  Company Number: US-BAXTER-2012BH006947

PATIENT
  Sex: Male

DRUGS (1)
  1. DIANEAL [Suspect]
     Indication: PERITONEAL DIALYSIS
     Route: 033
     Dates: end: 20120225

REACTIONS (4)
  - CARDIAC DISORDER [None]
  - RESPIRATORY FAILURE [None]
  - RENAL FAILURE CHRONIC [None]
  - CARDIAC FAILURE [None]
